FAERS Safety Report 20722782 (Version 15)
Quarter: 2023Q2

REPORT INFORMATION
  Report Type: Spontaneous
  Country: PL (occurrence: PL)
  Receive Date: 20220419
  Receipt Date: 20230424
  Transmission Date: 20230722
  Serious: Yes (Hospitalization, Other)
  Sender: FDA-Public Use
  Company Number: PL-GEN-2022-1562

PATIENT
  Age: 31 Year
  Sex: Male

DRUGS (36)
  1. ALPRAZOLAM [Interacting]
     Active Substance: ALPRAZOLAM
     Indication: Affective disorder
     Dosage: 1 MILLIGRAM, ONCE A DAY (AT NIGNT)
     Route: 065
  2. ALPRAZOLAM [Interacting]
     Active Substance: ALPRAZOLAM
     Indication: Anxiety
  3. ALPRAZOLAM [Interacting]
     Active Substance: ALPRAZOLAM
     Indication: Insomnia
  4. ATORVASTATIN [Interacting]
     Active Substance: ATORVASTATIN
     Indication: Dyslipidaemia
     Dosage: 40 MILLIGRAM, ONCE A DAY
     Route: 065
  5. RAMIPRIL [Suspect]
     Active Substance: RAMIPRIL
     Indication: Hypertension
     Dosage: 10 MILLIGRAM, ONCE A DAY
     Route: 065
  6. SERTRALINE [Interacting]
     Active Substance: SERTRALINE HYDROCHLORIDE
     Indication: Affective disorder
     Dosage: 50 MILLIGRAM, ONCE A DAY (50 MG QD IN THE MORNING)
     Route: 065
  7. SERTRALINE [Interacting]
     Active Substance: SERTRALINE HYDROCHLORIDE
     Indication: Anxiety
  8. SERTRALINE [Interacting]
     Active Substance: SERTRALINE HYDROCHLORIDE
     Indication: Insomnia
  9. SERTRALINE [Interacting]
     Active Substance: SERTRALINE HYDROCHLORIDE
     Indication: Depression
  10. SERTRALINE [Interacting]
     Active Substance: SERTRALINE HYDROCHLORIDE
     Indication: Back pain
  11. TADALAFIL [Interacting]
     Active Substance: TADALAFIL
     Indication: Erectile dysfunction
     Dosage: 10 MILLIGRAM, ONCE A DAY
     Route: 065
  12. TADALAFIL [Interacting]
     Active Substance: TADALAFIL
     Indication: Anorgasmia
     Dosage: 10 MILLIGRAM, AS NECESSARY
     Route: 065
  13. DICLOFENAC [Interacting]
     Active Substance: DICLOFENAC
     Indication: Back pain
     Dosage: 150 MILLIGRAM, ONCE A DAY
     Route: 065
  14. DICLOFENAC [Interacting]
     Active Substance: DICLOFENAC
     Indication: Sacral pain
  15. DICLOFENAC SODIUM [Suspect]
     Active Substance: DICLOFENAC SODIUM
     Indication: Back pain
     Dosage: 150 MILLIGRAM, ONCE A DAY
     Route: 065
  16. ACETAMINOPHEN\TRAMADOL HYDROCHLORIDE [Suspect]
     Active Substance: ACETAMINOPHEN\TRAMADOL HYDROCHLORIDE
     Indication: Pain
     Dosage: 2 DOSAGE FORM, ONCE A DAY
     Route: 065
  17. ACETAMINOPHEN\TRAMADOL HYDROCHLORIDE [Suspect]
     Active Substance: ACETAMINOPHEN\TRAMADOL HYDROCHLORIDE
     Indication: Back pain
     Dosage: 1 DOSAGE FORM, TWO TIMES A DAY
     Route: 065
  18. ACETAMINOPHEN\TRAMADOL HYDROCHLORIDE [Suspect]
     Active Substance: ACETAMINOPHEN\TRAMADOL HYDROCHLORIDE
     Dosage: UNK
     Route: 042
  19. ACETAMINOPHEN\TRAMADOL [Suspect]
     Active Substance: ACETAMINOPHEN\TRAMADOL
     Indication: Back pain
     Dosage: UNK, ONCE A DAY (BID (37.5 / 325 MG TWICE A DAY)
     Route: 065
  20. ACETAMINOPHEN\TRAMADOL [Suspect]
     Active Substance: ACETAMINOPHEN\TRAMADOL
     Indication: Sacral pain
  21. MORPHINE [Suspect]
     Active Substance: MORPHINE
     Indication: Pain
     Dosage: 10 MILLIGRAM
     Route: 042
  22. MORPHINE [Suspect]
     Active Substance: MORPHINE
     Indication: Analgesic therapy
  23. MORPHINE [Suspect]
     Active Substance: MORPHINE
     Indication: Back pain
  24. KETOPROFEN [Suspect]
     Active Substance: KETOPROFEN
     Indication: Pain
     Dosage: 100 MILLIGRAM
     Route: 042
  25. KETOPROFEN [Suspect]
     Active Substance: KETOPROFEN
     Indication: Analgesic therapy
  26. KETOPROFEN [Suspect]
     Active Substance: KETOPROFEN
     Indication: Back pain
  27. FUROSEMIDE [Concomitant]
     Active Substance: FUROSEMIDE
     Indication: Cardiac disorder
     Dosage: UNK
     Route: 042
  28. METOPROLOL [Concomitant]
     Active Substance: METOPROLOL
     Indication: Cardiac disorder
     Dosage: UNK
     Route: 065
  29. RAMIPRIL [Concomitant]
     Active Substance: RAMIPRIL
     Indication: Hypertension
     Dosage: 10 MILLIGRAM, ONCE A DAY
     Route: 065
  30. KETAMINE [Concomitant]
     Active Substance: KETAMINE
     Indication: Back pain
     Dosage: UNK
     Route: 065
  31. AGOMELATINE [Concomitant]
     Active Substance: AGOMELATINE
     Indication: Depression
     Dosage: UNK
     Route: 065
  32. BUPRENORPHINE [Concomitant]
     Active Substance: BUPRENORPHINE
     Indication: Sleep disorder
     Dosage: TITRATED DOSE
     Route: 065
  33. BUPRENORPHINE [Concomitant]
     Active Substance: BUPRENORPHINE
     Indication: Back pain
     Dosage: 17.5 MICROGRAM,
     Route: 065
  34. LORNOXICAM [Concomitant]
     Active Substance: LORNOXICAM
     Indication: Back pain
     Dosage: UNK
     Route: 065
  35. MAGNESIUM SULFATE [Concomitant]
     Active Substance: MAGNESIUM SULFATE
     Indication: Back pain
     Dosage: UNK
  36. VALPROATE SODIUM [Concomitant]
     Active Substance: VALPROATE SODIUM
     Indication: Back pain
     Dosage: UNK
     Route: 065

REACTIONS (20)
  - Drug interaction [Recovered/Resolved]
  - Back pain [Recovered/Resolved]
  - Erectile dysfunction [Recovered/Resolved]
  - Anorgasmia [Recovered/Resolved]
  - Drug level increased [Unknown]
  - Hyperaesthesia [Recovered/Resolved]
  - Blood pressure increased [Recovering/Resolving]
  - Tachycardia [Recovering/Resolving]
  - Pain [Unknown]
  - Tachypnoea [Recovering/Resolving]
  - Drug ineffective [Recovered/Resolved]
  - Product use in unapproved indication [Unknown]
  - Ill-defined disorder [Unknown]
  - Sacral pain [Recovered/Resolved]
  - Neuralgia [Recovered/Resolved]
  - Depression [Unknown]
  - Insomnia [Recovering/Resolving]
  - Therapy non-responder [Unknown]
  - Condition aggravated [Recovered/Resolved]
  - Affective disorder [Recovering/Resolving]
